FAERS Safety Report 4313310-3 (Version None)
Quarter: 2004Q1

REPORT INFORMATION
  Report Type: 
  Country: None (occurrence: None)
  Receive Date: 20040304
  Receipt Date: 20040225
  Transmission Date: 20041129
  Serious: Yes (Hospitalization)
  Sender: FDA-Public Use
  Company Number: FR-JNJFOC-20040205523

PATIENT
  Age: 69 Year
  Sex: Male

DRUGS (5)
  1. HALDOL [Suspect]
     Dosage: 10 MG, ORAL
     Route: 048
     Dates: start: 20040210, end: 20040210
  2. NOZINAN (LEVOMEPROMAZINE) TABLETS [Suspect]
     Dosage: 150 MG, ORAL
     Route: 048
     Dates: start: 20040210, end: 20040210
  3. AKINETON RETARD (BIPERIDEN HYDROCHLORIDE) TABLETS [Suspect]
     Dosage: 4 MG, ORAL
     Route: 048
     Dates: start: 20040210, end: 20040210
  4. RIVOTRIL (CLONAZEPAM) TABLETS [Suspect]
     Dosage: 3 MG, ORAL
     Route: 048
     Dates: start: 20040210, end: 20040210
  5. EQUANIL [Concomitant]

REACTIONS (4)
  - MEDICATION ERROR [None]
  - SINUS TACHYCARDIA [None]
  - SOMNOLENCE [None]
  - VOMITING [None]
